FAERS Safety Report 10357865 (Version 1)
Quarter: 2014Q3

REPORT INFORMATION
  Report Type: Report from Study
  Country: UG (occurrence: UG)
  Receive Date: 20140801
  Receipt Date: 20140801
  Transmission Date: 20150326
  Serious: Yes (Death, Life-Threatening, Hospitalization, Other)
  Sender: FDA-Public Use
  Company Number: UG-BRISTOL-MYERS SQUIBB COMPANY-21230743

PATIENT
  Age: 32 Year
  Sex: Male

DRUGS (10)
  1. RALTEGRAVIR [Suspect]
     Active Substance: RALTEGRAVIR
     Dates: start: 20140610, end: 20140616
  2. AMPICILLIN [Suspect]
     Active Substance: AMPICILLIN
     Dates: start: 20140507, end: 20140512
  3. TRUVADA [Suspect]
     Active Substance: EMTRICITABINE\TENOFOVIR DISOPROXIL FUMARATE
     Dates: start: 20140610, end: 20140616
  4. ISONIAZID. [Suspect]
     Active Substance: ISONIAZID
     Dates: start: 20140610, end: 20140616
  5. BENZATHINE BENZYLPENICILLIN [Suspect]
     Active Substance: PENICILLIN G BENZATHINE
     Dates: start: 20140507, end: 20140606
  6. EFAVIRENZ [Suspect]
     Active Substance: EFAVIRENZ
     Dates: start: 20140610, end: 20140616
  7. ERYTHROMYCIN. [Suspect]
     Active Substance: ERYTHROMYCIN
     Dates: start: 20140426, end: 201404
  8. QUININE [Suspect]
     Active Substance: QUININE
     Dates: start: 20140507, end: 20140510
  9. COTRIMOXAZOLE [Suspect]
     Active Substance: SULFAMETHOXAZOLE\TRIMETHOPRIM
     Dates: start: 20140610, end: 20140616
  10. GENTAMICIN [Suspect]
     Active Substance: GENTAMICIN
     Dates: start: 20140426, end: 20140506

REACTIONS (2)
  - Malaria [Unknown]
  - Death [Fatal]
